FAERS Safety Report 8756047 (Version 2)
Quarter: 2012Q4

REPORT INFORMATION
  Report Type: Spontaneous
  Country: US (occurrence: None)
  Receive Date: 20120816
  Receipt Date: 20120907
  Transmission Date: 20130627
  Serious: Yes (Other)
  Sender: FDA-Public Use
  Company Number: ADR-2012-01433

PATIENT
  Sex: Female

DRUGS (2)
  1. LIORESAL [Suspect]
     Indication: SPASTICITY
  2. LIORESAL [Suspect]
     Indication: MULTIPLE SCLEROSIS

REACTIONS (2)
  - Joint dislocation [None]
  - Device dislocation [None]
